FAERS Safety Report 10563495 (Version 3)
Quarter: 2015Q1

REPORT INFORMATION
  Report Type: Spontaneous
  Country: US (occurrence: US)
  Receive Date: 20141104
  Receipt Date: 20150331
  Transmission Date: 20150720
  Serious: Yes (Hospitalization, Other)
  Sender: FDA-Public Use
  Company Number: US-PFIZER INC-2014302746

PATIENT
  Age: 77 Year
  Sex: Female
  Weight: 74.83 kg

DRUGS (7)
  1. TYLENOL [Concomitant]
     Active Substance: ACETAMINOPHEN
     Indication: PAIN
     Dosage: WHEN SHE HAD SEVERE PAIN
     Dates: start: 2013, end: 201501
  2. GABAPENTIN. [Suspect]
     Active Substance: GABAPENTIN
     Indication: SCIATIC NERVE NEUROPATHY
     Dosage: 300 MG, 1X/DAY BEFORE BEDTIME
     Dates: start: 2013
  3. CODEINE [Concomitant]
     Active Substance: CODEINE
     Indication: PAIN
     Dosage: WHEN SHE HAD SEVERE PAIN
  4. GABAPENTIN. [Suspect]
     Active Substance: GABAPENTIN
     Indication: ARTHRITIS
     Dosage: 600 MG, UNK
  5. XANAX [Concomitant]
     Active Substance: ALPRAZOLAM
     Dosage: UNK, 1X/DAY BED TIME
  6. GABAPENTIN. [Suspect]
     Active Substance: GABAPENTIN
     Indication: SLEEP DISORDER
  7. TRAMADOL [Concomitant]
     Active Substance: TRAMADOL
     Dosage: ONE OR TWO IN THE MORNING OR AS NEEDED
     Dates: start: 2014

REACTIONS (4)
  - Dizziness [Recovered/Resolved]
  - Spinal disorder [Recovered/Resolved]
  - Drug ineffective [Recovered/Resolved]
  - Nausea [Recovered/Resolved]

NARRATIVE: CASE EVENT DATE: 2013
